FAERS Safety Report 8790350 (Version 3)
Quarter: 2012Q4

REPORT INFORMATION
  Report Type: 
  Country: JP (occurrence: JP)
  Receive Date: 20120917
  Receipt Date: 20120928
  Transmission Date: 20130627
  Serious: Yes (Other)
  Sender: FDA-Public Use
  Company Number: JP-JNJFOC-20120905100

PATIENT
  Age: 57 Year
  Sex: Male

DRUGS (36)
  1. DUROTEP MT [Suspect]
     Indication: CANCER PAIN
     Route: 062
     Dates: start: 20100803, end: 20100831
  2. DUROTEP MT [Suspect]
     Indication: CANCER PAIN
     Route: 062
     Dates: start: 20100716, end: 20100802
  3. DUROTEP MT [Suspect]
     Indication: CANCER PAIN
     Route: 062
     Dates: start: 20100713, end: 20100715
  4. FENTANYL [Suspect]
     Indication: CANCER PAIN
     Route: 042
     Dates: start: 20100723, end: 20100723
  5. FENTANYL [Suspect]
     Indication: CANCER PAIN
     Route: 042
     Dates: start: 20100722, end: 20100722
  6. FENTANYL [Suspect]
     Indication: CANCER PAIN
     Route: 042
     Dates: start: 20100724, end: 20100803
  7. FENTANYL [Suspect]
     Indication: CANCER PAIN
     Route: 042
     Dates: start: 20100806, end: 20100806
  8. FENTANYL [Suspect]
     Indication: CANCER PAIN
     Route: 042
     Dates: start: 20100807, end: 20100807
  9. FENTANYL [Suspect]
     Indication: CANCER PAIN
     Route: 042
     Dates: start: 20100808, end: 20100808
  10. FENTANYL [Suspect]
     Indication: CANCER PAIN
     Route: 042
     Dates: start: 20100809, end: 20100817
  11. FENTANYL [Suspect]
     Indication: CANCER PAIN
     Route: 042
     Dates: start: 20100804, end: 20100805
  12. FENTANYL [Suspect]
     Indication: CANCER PAIN
     Route: 008
     Dates: start: 20100808, end: 20100809
  13. FENTANYL [Suspect]
     Indication: CANCER PAIN
     Route: 008
     Dates: start: 20100810, end: 20100811
  14. BETAMETHASONE SODIUM PHOSPHATE [Suspect]
     Indication: MALAISE
     Route: 042
     Dates: start: 20100814, end: 20100831
  15. BETAMETHASONE SODIUM PHOSPHATE [Suspect]
     Indication: MALAISE
     Route: 042
     Dates: start: 20100812, end: 20100813
  16. CLOMIPRAMINE HYDROCHLORIDE [Suspect]
     Indication: CANCER PAIN
     Route: 041
     Dates: start: 20100812, end: 20100831
  17. UNKNOWN MEDICATION [Suspect]
     Indication: CANCER PAIN
     Route: 042
     Dates: start: 20120811, end: 20120831
  18. OXYCODONE HYDROCHLORIDE [Suspect]
     Indication: CANCER PAIN
     Route: 048
  19. MORPHINE HYDROCHLORIDE [Suspect]
     Indication: CANCER PAIN
     Route: 042
     Dates: start: 20100812, end: 20100817
  20. MORPHINE HYDROCHLORIDE [Suspect]
     Indication: CANCER PAIN
     Route: 042
     Dates: start: 20100811, end: 20100811
  21. MORPHINE HYDROCHLORIDE [Suspect]
     Indication: CANCER PAIN
     Route: 042
     Dates: start: 20100818, end: 20100831
  22. GABAPENTIN [Concomitant]
     Indication: NEURALGIA
     Route: 048
     Dates: start: 20100721, end: 20100721
  23. GABAPENTIN [Concomitant]
     Indication: NEURALGIA
     Route: 048
     Dates: start: 20100722, end: 20100722
  24. GABAPENTIN [Concomitant]
     Indication: NEURALGIA
     Route: 048
     Dates: start: 20100728, end: 20100806
  25. IMIPRAMINE HYDROCHLORIDE [Concomitant]
     Indication: INSOMNIA
     Route: 048
     Dates: start: 20100810, end: 20100811
  26. MELOXICAM [Concomitant]
     Indication: CANCER PAIN
     Route: 048
  27. FLURBIPROFEN AXETIL [Concomitant]
     Indication: CANCER PAIN
     Route: 042
     Dates: start: 20100723, end: 20100727
  28. FLURBIPROFEN AXETIL [Concomitant]
     Indication: CANCER PAIN
     Route: 042
     Dates: start: 20100806, end: 20100831
  29. OXYCONTIN [Concomitant]
     Indication: CANCER PAIN
     Route: 048
     Dates: start: 20100714, end: 20100721
  30. OXYCONTIN [Concomitant]
     Indication: CANCER PAIN
     Route: 048
     Dates: end: 20100713
  31. OXYCONTIN [Concomitant]
     Indication: CANCER PAIN
     Route: 048
     Dates: start: 20100722, end: 20100722
  32. MELOXICAM [Concomitant]
     Indication: CANCER PAIN
     Route: 048
     Dates: start: 20100728, end: 20100806
  33. MELOXICAM [Concomitant]
     Indication: CANCER PAIN
     Route: 048
     Dates: end: 20100722
  34. PROCHLORPERAZINE MALEATE [Concomitant]
     Route: 048
     Dates: start: 20100708, end: 20100708
  35. PROCHLORPERAZINE MALEATE [Concomitant]
     Route: 048
     Dates: start: 20100715, end: 20100715
  36. PROCHLORPERAZINE MALEATE [Concomitant]
     Route: 048
     Dates: start: 20100704, end: 20100706

REACTIONS (3)
  - Delirium [Recovered/Resolved]
  - Somnolence [Recovered/Resolved]
  - Incorrect route of drug administration [Unknown]
